FAERS Safety Report 9829403 (Version 3)
Quarter: 2014Q3

REPORT INFORMATION
  Report Type: Report from Study
  Country: US (occurrence: US)
  Receive Date: 20140120
  Receipt Date: 20140729
  Transmission Date: 20150326
  Serious: Yes (Death)
  Sender: FDA-Public Use
  Company Number: US-BIOGENIDEC-2014BI003395

PATIENT
  Age: 75 Year
  Sex: Male

DRUGS (1)
  1. AVONEX [Suspect]
     Active Substance: INTERFERON BETA-1A
     Indication: MULTIPLE SCLEROSIS
     Route: 030
     Dates: start: 20111128, end: 20131101

REACTIONS (5)
  - Parkinson^s disease [Not Recovered/Not Resolved]
  - Multiple sclerosis [Unknown]
  - Pulmonary embolism [Fatal]
  - Lung disorder [Unknown]
  - Aspiration [Unknown]

NARRATIVE: CASE EVENT DATE: 20131101
